FAERS Safety Report 8401878-7 (Version None)
Quarter: 2012Q2

REPORT INFORMATION
  Report Type: 
  Country: None (occurrence: None)
  Receive Date: 20120601
  Receipt Date: 20110923
  Transmission Date: 20120825
  Serious: No
  Sender: FDA-Public Use
  Company Number: US-ABBOTT-11P-163-0857550-00

PATIENT
  Sex: Female
  Weight: 41.768 kg

DRUGS (1)
  1. DRONABINOL [Suspect]
     Indication: NAUSEA
     Dosage: 1-3 TIMES DAILY
     Route: 048

REACTIONS (4)
  - CAPSULE PHYSICAL ISSUE [None]
  - NAUSEA [None]
  - POOR QUALITY DRUG ADMINISTERED [None]
  - DRUG EFFECT DECREASED [None]
